FAERS Safety Report 4896853-3 (Version None)
Quarter: 2006Q1

REPORT INFORMATION
  Report Type: 
  Country: None (occurrence: None)
  Receive Date: 20060126
  Receipt Date: 20060123
  Transmission Date: 20060701
  Serious: Yes (Disabling)
  Sender: FDA-Public Use
  Company Number: TCI2005A01486

PATIENT
  Sex: Male

DRUGS (5)
  1. ACTOS [Suspect]
     Indication: DIABETES MELLITUS
     Dosage: 15 MG (15 MG, 1 D) PER ORAL
     Route: 048
     Dates: start: 20040927, end: 20050301
  2. GLYBURIDE [Concomitant]
  3. NAUZELIN (DOMPERIDONE) [Concomitant]
  4. FAMOTIDINE [Concomitant]
  5. HARNAL          (TAMSULOSIN HYDROCHLORIDE) [Concomitant]

REACTIONS (3)
  - AMMONIA INCREASED [None]
  - BLOOD CREATINE PHOSPHOKINASE INCREASED [None]
  - DEPRESSED LEVEL OF CONSCIOUSNESS [None]
